FAERS Safety Report 11739587 (Version 1)
Quarter: 2015Q4

REPORT INFORMATION
  Report Type: Report from Study
  Country: IN (occurrence: IN)
  Receive Date: 20151113
  Receipt Date: 20151113
  Transmission Date: 20160304
  Serious: Yes (Other)
  Sender: FDA-Public Use
  Company Number: PHHO2015IN017608

PATIENT
  Age: 64 Year
  Sex: Female
  Weight: 65.3 kg

DRUGS (4)
  1. TYKERB [Suspect]
     Active Substance: LAPATINIB DITOSYLATE
     Indication: BREAST CANCER
     Dosage: 100 MG, UNK
     Route: 048
     Dates: start: 20090818
  2. TRASTUZUMAB [Suspect]
     Active Substance: TRASTUZUMAB
     Indication: BREAST CANCER
     Dosage: 8 MG/KG, UNK
     Route: 042
     Dates: start: 20090818
  3. TRASTUZUMAB [Suspect]
     Active Substance: TRASTUZUMAB
     Dosage: 6 MG/KG, UNK
     Route: 042
  4. PACLITAXEL. [Suspect]
     Active Substance: PACLITAXEL
     Indication: BREAST CANCER
     Dosage: UNK
     Route: 042
     Dates: start: 20090615

REACTIONS (1)
  - Breast cancer [Unknown]

NARRATIVE: CASE EVENT DATE: 20150912
